FAERS Safety Report 12221147 (Version 1)
Quarter: 2016Q1

REPORT INFORMATION
  Report Type: Spontaneous
  Country: PT (occurrence: PT)
  Receive Date: 20160330
  Receipt Date: 20160330
  Transmission Date: 20160526
  Serious: Yes (Other)
  Sender: FDA-Public Use
  Company Number: PT-VIIV HEALTHCARE LIMITED-PT2016040044

PATIENT
  Age: 61 Year
  Sex: Male

DRUGS (2)
  1. NEVIRAPINA [Concomitant]
     Indication: HIV INFECTION
     Dosage: 200 MG, QD
     Route: 048
     Dates: start: 2001
  2. KIVEXA [Suspect]
     Active Substance: ABACAVIR SULFATE\LAMIVUDINE
     Indication: HIV INFECTION
     Dosage: 1 DF, QD
     Route: 048
     Dates: start: 20160303, end: 20160309

REACTIONS (4)
  - Nausea [Unknown]
  - Vomiting [Unknown]
  - Pruritus generalised [Unknown]
  - Rash generalised [Unknown]

NARRATIVE: CASE EVENT DATE: 20160303
